FAERS Safety Report 13581038 (Version 1)
Quarter: 2017Q2

REPORT INFORMATION
  Report Type: Spontaneous
  Country: US (occurrence: US)
  Receive Date: 20170525
  Receipt Date: 20170525
  Transmission Date: 20170830
  Serious: Yes (Other)
  Sender: FDA-Public Use
  Company Number: None

PATIENT
  Age: 61 Year
  Sex: Male
  Weight: 126 kg

DRUGS (12)
  1. METOPROLOL. [Concomitant]
     Active Substance: METOPROLOL
  2. METFORMIN HCL 1000MG TABLETS [Suspect]
     Active Substance: METFORMIN HYDROCHLORIDE
     Indication: DIABETES MELLITUS
     Dosage: ?          QUANTITY:180 TABLET(S);?
     Route: 048
     Dates: start: 20170414, end: 20170522
  3. ALPRAZOLAM. [Concomitant]
     Active Substance: ALPRAZOLAM
  4. SIMVASTATIN. [Concomitant]
     Active Substance: SIMVASTATIN
  5. ESCITALOPRAM [Concomitant]
     Active Substance: ESCITALOPRAM OXALATE
  6. HUMALOG [Concomitant]
     Active Substance: INSULIN LISPRO
  7. IBUPROFEN. [Concomitant]
     Active Substance: IBUPROFEN
  8. LANTUS [Concomitant]
     Active Substance: INSULIN GLARGINE
  9. BACLOFEN. [Concomitant]
     Active Substance: BACLOFEN
  10. TRAMADOL. [Concomitant]
     Active Substance: TRAMADOL
  11. LISINOPRIL. [Concomitant]
     Active Substance: LISINOPRIL
  12. BUPROP9ON HCL SR [Concomitant]

REACTIONS (6)
  - Product odour abnormal [None]
  - Nausea [None]
  - Flatulence [None]
  - Urine odour abnormal [None]
  - Abdominal pain upper [None]
  - Product quality issue [None]

NARRATIVE: CASE EVENT DATE: 20170414
